FAERS Safety Report 6768047-8 (Version None)
Quarter: 2010Q2

REPORT INFORMATION
  Report Type: 
  Country: None (occurrence: None)
  Receive Date: 20100614
  Receipt Date: 20100609
  Transmission Date: 20101027
  Serious: Yes (Hospitalization)
  Sender: FDA-Public Use
  Company Number: B0659665A

PATIENT
  Sex: Female

DRUGS (2)
  1. AUGMENTIN '125' [Suspect]
     Route: 065
     Dates: start: 20100104, end: 20100118
  2. LITHIUM [Concomitant]
     Route: 065

REACTIONS (9)
  - ANAPHYLACTIC SHOCK [None]
  - CONFUSIONAL STATE [None]
  - DERMATITIS EXFOLIATIVE [None]
  - DRUG HYPERSENSITIVITY [None]
  - HYPERKALAEMIA [None]
  - HYPERNATRAEMIA [None]
  - HYPOTENSION [None]
  - LARYNGEAL DYSPNOEA [None]
  - RENAL FAILURE ACUTE [None]
